FAERS Safety Report 23856914 (Version 2)
Quarter: 2024Q4

REPORT INFORMATION
  Report Type: Spontaneous
  Country: US (occurrence: US)
  Receive Date: 20240515
  Receipt Date: 20241115
  Transmission Date: 20250114
  Serious: Yes (Hospitalization, Other)
  Sender: GLAXOSMITHKLINE
  Company Number: US-GLAXOSMITHKLINE-US2024AMR060478

PATIENT

DRUGS (3)
  1. BENLYSTA [Suspect]
     Active Substance: BELIMUMAB
     Indication: Systemic lupus erythematosus
     Dosage: 200 MG/ML, WE
     Route: 058
  2. BENLYSTA [Suspect]
     Active Substance: BELIMUMAB
     Indication: Asthmatic crisis
  3. BENLYSTA [Suspect]
     Active Substance: BELIMUMAB
     Indication: Pulmonary vasculitis

REACTIONS (3)
  - Pneumonia [Unknown]
  - Lupus nephritis [Unknown]
  - Product use in unapproved indication [Unknown]
